FAERS Safety Report 10182542 (Version 1)
Quarter: 2014Q2

REPORT INFORMATION
  Report Type: Spontaneous
  Country: US (occurrence: None)
  Receive Date: 20140425
  Receipt Date: 20140425
  Transmission Date: 20141212
  Serious: No
  Sender: FDA-Public Use
  Company Number: 1329833

PATIENT
  Age: 43 Year
  Sex: Female

DRUGS (6)
  1. ZELBORAF [Suspect]
     Indication: PRODUCT USED FOR UNKNOWN INDICATION
     Route: 048
     Dates: start: 20121214
  2. KEPPRA(LEVETIRACTETAM) [Concomitant]
  3. XANAX(ALPRAZOLAM) [Concomitant]
  4. LASIX(FUROSEMIDE) [Concomitant]
  5. CELEXA(UNITED STATES)(CITALOPRAM HYDROBROMIDE) [Concomitant]
  6. NEXIUM(ESOMEPRAZOLE) [Concomitant]

REACTIONS (1)
  - Pain [None]
